FAERS Safety Report 26135851 (Version 1)
Quarter: 2025Q4

REPORT INFORMATION
  Report Type: Spontaneous
  Country: US (occurrence: None)
  Receive Date: 20251209
  Receipt Date: 20251209
  Transmission Date: 20260118
  Serious: Yes (Life-Threatening, Hospitalization)
  Sender: FDA-CTU
  Company Number: None

PATIENT
  Age: 62 Year
  Sex: Male

DRUGS (4)
  1. PHENTERMINE HYDROCHLORIDE\TOPIRAMATE [Suspect]
     Active Substance: PHENTERMINE HYDROCHLORIDE\TOPIRAMATE
     Indication: Suicidal ideation
     Dosage: 1 TAB EVERY DAY PO
     Route: 048
     Dates: start: 20241212, end: 20250407
  2. METOPROLOL [Suspect]
     Active Substance: METOPROLOL
  3. CYCLOBENZAPRINE [Suspect]
     Active Substance: CYCLOBENZAPRINE
  4. MELATONIN [Suspect]
     Active Substance: MELATONIN

REACTIONS (5)
  - Product use issue [None]
  - Withdrawal syndrome [None]
  - Intentional overdose [None]
  - Suicide attempt [None]
  - Depression [None]

NARRATIVE: CASE EVENT DATE: 20250409
